FAERS Safety Report 22005644 (Version 1)
Quarter: 2023Q1

REPORT INFORMATION
  Report Type: Spontaneous
  Country: BR (occurrence: BR)
  Receive Date: 20230217
  Receipt Date: 20230217
  Transmission Date: 20230418
  Serious: Yes (Other)
  Sender: FDA-Public Use
  Company Number: BR-PFIZER INC-PV202300028162

PATIENT
  Age: 22 Year
  Sex: Female

DRUGS (1)
  1. TALIGLUCERASE ALFA [Suspect]
     Active Substance: TALIGLUCERASE ALFA
     Indication: Gaucher^s disease
     Dosage: NINE BOTTLES EVERY FIFTEEN DAYS
     Dates: start: 20200901, end: 20220908

REACTIONS (2)
  - Myelodysplastic syndrome [Unknown]
  - Laboratory test abnormal [Unknown]
